FAERS Safety Report 17028599 (Version 1)
Quarter: 2019Q4

REPORT INFORMATION
  Report Type: Spontaneous
  Country: JP (occurrence: JP)
  Receive Date: 20191113
  Receipt Date: 20191113
  Transmission Date: 20200122
  Serious: Yes (Other)
  Sender: FDA-Public Use
  Company Number: JP-SUN PHARMACEUTICAL INDUSTRIES LTD-2019R1-226749

PATIENT
  Age: 45 Year
  Sex: Male

DRUGS (6)
  1. TS-1 [Suspect]
     Active Substance: GIMERACIL\OTERACIL\TEGAFUR
     Indication: THYMIC CANCER METASTATIC
     Dosage: UNK
     Route: 065
  2. TS-1 [Suspect]
     Active Substance: GIMERACIL\OTERACIL\TEGAFUR
     Indication: PERICARDIAL EFFUSION MALIGNANT
  3. PACLITAXEL. [Suspect]
     Active Substance: PACLITAXEL
     Indication: THYMIC CANCER METASTATIC
     Dosage: UNK
     Route: 065
  4. CARBOPLATIN. [Suspect]
     Active Substance: CARBOPLATIN
     Indication: PERICARDIAL EFFUSION MALIGNANT
  5. CARBOPLATIN. [Suspect]
     Active Substance: CARBOPLATIN
     Indication: THYMIC CANCER METASTATIC
     Dosage: UNK
     Route: 065
  6. PACLITAXEL. [Suspect]
     Active Substance: PACLITAXEL
     Indication: PERICARDIAL EFFUSION MALIGNANT

REACTIONS (1)
  - Hepatic function abnormal [Unknown]
